FAERS Safety Report 5057076-0 (Version None)
Quarter: 2006Q3

REPORT INFORMATION
  Report Type: 
  Country: None (occurrence: None)
  Receive Date: 20060721
  Receipt Date: 20060714
  Transmission Date: 20061208
  Serious: Yes (Hospitalization)
  Sender: FDA-Public Use
  Company Number: US-AVENTIS-200615919US

PATIENT
  Age: 43 Year
  Sex: Male

DRUGS (1)
  1. KETEK [Suspect]
     Indication: SINUSITIS
     Dosage: DOSE: UNK
     Dates: start: 20060101

REACTIONS (9)
  - ALANINE AMINOTRANSFERASE INCREASED [None]
  - ASPARTATE AMINOTRANSFERASE INCREASED [None]
  - BLOOD ALKALINE PHOSPHATASE INCREASED [None]
  - BLOOD BILIRUBIN INCREASED [None]
  - CHRONIC HEPATITIS [None]
  - HEPATOCELLULAR DAMAGE [None]
  - INFLUENZA LIKE ILLNESS [None]
  - JAUNDICE [None]
  - MICTURITION URGENCY [None]
